FAERS Safety Report 12983729 (Version 2)
Quarter: 2016Q4

REPORT INFORMATION
  Report Type: Spontaneous
  Country: US (occurrence: US)
  Receive Date: 20161129
  Receipt Date: 20161214
  Transmission Date: 20170207
  Serious: Yes (Hospitalization)
  Sender: FDA-Public Use
  Company Number: US-SMITH AND NEPHEW, INC-2016SMT01026

PATIENT
  Sex: Male
  Weight: 90.7 kg

DRUGS (3)
  1. REGRANEX [Suspect]
     Active Substance: BECAPLERMIN
     Indication: DIABETIC FOOT
     Dosage: UNK UNK, 1X/DAY
     Route: 061
     Dates: start: 201611, end: 20161104
  2. UNSPECIFIED CHOLESTEROL MEDICATION [Concomitant]
     Active Substance: UNSPECIFIED INGREDIENT
  3. UNSPECIFIED BLOOD PRESSURE MEDICATION [Concomitant]
     Active Substance: UNSPECIFIED INGREDIENT

REACTIONS (1)
  - Wound infection [Recovering/Resolving]
